FAERS Safety Report 4857759-9 (Version None)
Quarter: 2005Q4

REPORT INFORMATION
  Report Type: 
  Country: None (occurrence: None)
  Receive Date: 20051219
  Receipt Date: 20050401
  Transmission Date: 20060501
  Serious: No
  Sender: FDA-Public Use
  Company Number: US-GLAXOSMITHKLINE-A0552292A

PATIENT
  Age: 75 Year
  Sex: Female

DRUGS (8)
  1. NICODERM CQ [Suspect]
  2. WELLBUTRIN [Concomitant]
  3. ALBUTEROL [Concomitant]
  4. DUONEB [Concomitant]
  5. LEVOXYL [Concomitant]
  6. ADVAIR DISKUS 250/50 [Concomitant]
  7. WELLBUTRIN [Concomitant]
  8. STOOL SOFTENER [Concomitant]

REACTIONS (3)
  - GENERALISED ERYTHEMA [None]
  - PRURITUS GENERALISED [None]
  - RASH GENERALISED [None]
